FAERS Safety Report 6232331-7 (Version None)
Quarter: 2009Q2

REPORT INFORMATION
  Report Type: 
  Country: None (occurrence: None)
  Receive Date: 20090615
  Receipt Date: 20090605
  Transmission Date: 20091009
  Serious: Yes (Hospitalization)
  Sender: FDA-Public Use
  Company Number: DSA_33735_2009

PATIENT
  Sex: Female

DRUGS (10)
  1. XENAZINE [Suspect]
     Indication: HUNTINGTON'S CHOREA
     Dosage: 12.5 MG QD ORAL, 12.5 MG QD 1/2 TABLET ORAL
     Route: 048
     Dates: start: 20090501, end: 20090526
  2. XENAZINE [Suspect]
     Indication: HUNTINGTON'S CHOREA
     Dosage: 12.5 MG QD ORAL, 12.5 MG QD 1/2 TABLET ORAL
     Route: 048
     Dates: start: 20090527, end: 20090528
  3. LEVOXYL [Concomitant]
  4. ACIPHEX [Concomitant]
  5. ABILIFY [Concomitant]
  6. CELEXA [Concomitant]
  7. WARFARIN [Concomitant]
  8. CLONAZEPAM [Concomitant]
  9. TEMAZEPAM [Concomitant]
  10. LOVAZA [Concomitant]

REACTIONS (8)
  - ANXIETY [None]
  - COGNITIVE DISORDER [None]
  - DYSARTHRIA [None]
  - HALLUCINATION, VISUAL [None]
  - INSOMNIA [None]
  - MEMORY IMPAIRMENT [None]
  - NAIL BED BLEEDING [None]
  - SELF INJURIOUS BEHAVIOUR [None]
